FAERS Safety Report 9441636 (Version 1)
Quarter: 2013Q3

REPORT INFORMATION
  Report Type: Spontaneous
  Country: DE (occurrence: DE)
  Receive Date: 20130806
  Receipt Date: 20130806
  Transmission Date: 20140515
  Serious: Yes (Hospitalization)
  Sender: FDA-Public Use
  Company Number: DE-BIOGENIDEC-2013BI006593

PATIENT
  Age: 32 Year
  Sex: Female
  Weight: 59 kg

DRUGS (1)
  1. AVONEX [Suspect]
     Indication: PRODUCT USED FOR UNKNOWN INDICATION
     Route: 030
     Dates: start: 20120327

REACTIONS (7)
  - Muscle twitching [Recovered/Resolved]
  - Tremor [Not Recovered/Not Resolved]
  - Dysstasia [Not Recovered/Not Resolved]
  - Muscle spasticity [Not Recovered/Not Resolved]
  - Pain in extremity [Not Recovered/Not Resolved]
  - Musculoskeletal stiffness [Recovered/Resolved]
  - Pilonidal cyst [Recovered/Resolved]
